FAERS Safety Report 9637328 (Version 1)
Quarter: 2013Q4

REPORT INFORMATION
  Report Type: Spontaneous
  Country: KR (occurrence: KR)
  Receive Date: 20131022
  Receipt Date: 20131022
  Transmission Date: 20140711
  Serious: Yes (Death)
  Sender: FDA-Public Use
  Company Number: KR-JNJFOC-20131012215

PATIENT
  Sex: Female

DRUGS (2)
  1. FINIBAX [Suspect]
     Indication: PNEUMONIA
     Route: 041
     Dates: start: 20130729, end: 20130802
  2. AVELOX [Concomitant]
     Indication: PNEUMONIA
     Dosage: 400MG 250ML/BAG
     Route: 065

REACTIONS (1)
  - Prostate cancer [Fatal]
